APPROVED DRUG PRODUCT: CHLOROMYCETIN
Active Ingredient: CHLORAMPHENICOL SODIUM SUCCINATE
Strength: EQ 1GM BASE/VIAL
Dosage Form/Route: INJECTABLE;INJECTION
Application: N050155 | Product #001
Applicant: PARKEDALE PHARMACEUTICALS INC
Approved: Approved Prior to Jan 1, 1982 | RLD: Yes | RS: No | Type: DISCN